FAERS Safety Report 23890830 (Version 1)
Quarter: 2024Q2

REPORT INFORMATION
  Report Type: Spontaneous
  Country: US (occurrence: None)
  Receive Date: 20240523
  Receipt Date: 20240523
  Transmission Date: 20240715
  Serious: Yes (Hospitalization)
  Sender: FDA-Public Use
  Company Number: None

PATIENT
  Age: 10 Year
  Sex: Female
  Weight: 36 kg

DRUGS (9)
  1. DAPAGLIFLOZIN [Suspect]
     Active Substance: DAPAGLIFLOZIN
     Indication: Cardiac failure
     Dosage: FREQUENCY : DAILY;?
     Route: 048
     Dates: start: 20240109, end: 20240521
  2. ASPIRIN [Concomitant]
     Active Substance: ASPIRIN
  3. TACROLIMUS [Concomitant]
     Active Substance: TACROLIMUS
  4. AMLODIPINE [Concomitant]
     Active Substance: AMLODIPINE BESYLATE
  5. SPIRONOLACTONE [Concomitant]
     Active Substance: SPIRONOLACTONE
  6. BUMETANIDE [Concomitant]
     Active Substance: BUMETANIDE
  7. EVEROLIMUS [Concomitant]
     Active Substance: EVEROLIMUS
  8. PREDNISONE [Concomitant]
     Active Substance: PREDNISONE
  9. PRAVASTATIN [Concomitant]
     Active Substance: PRAVASTATIN

REACTIONS (2)
  - Viral infection [None]
  - Euglycaemic diabetic ketoacidosis [None]

NARRATIVE: CASE EVENT DATE: 20240521
